FAERS Safety Report 6501531-0 (Version None)
Quarter: 2009Q4

REPORT INFORMATION
  Report Type: 
  Country: None (occurrence: None)
  Receive Date: 20091216
  Receipt Date: 20091209
  Transmission Date: 20100525
  Serious: Yes (Other)
  Sender: FDA-Public Use
  Company Number: B0598471A

PATIENT
  Sex: Male

DRUGS (6)
  1. SERETIDE [Suspect]
     Indication: ASTHMA
     Dosage: 250MCG TWICE PER DAY
     Route: 055
     Dates: start: 20090205, end: 20091008
  2. FAMOTIDINE [Concomitant]
     Indication: GASTRITIS
     Dosage: 40MG PER DAY
     Route: 048
  3. UNKNOWN DRUG [Concomitant]
     Indication: GASTRITIS
     Dosage: 450MG PER DAY
     Route: 048
  4. GASMOTIN [Concomitant]
     Indication: GASTRITIS
     Dosage: 45MG PER DAY
     Route: 048
  5. PRANLUKAST [Concomitant]
     Indication: ASTHMA
     Dosage: 900MG PER DAY
     Route: 048
  6. UNKNOWN DRUG [Concomitant]
     Indication: ASTHMA
     Dosage: 20MG PER DAY
     Route: 048

REACTIONS (2)
  - DYSPHONIA [None]
  - VOCAL CORD ATROPHY [None]
